FAERS Safety Report 23492395 (Version 2)
Quarter: 2024Q1

REPORT INFORMATION
  Report Type: Spontaneous
  Country: AU (occurrence: AU)
  Receive Date: 20240207
  Receipt Date: 20240329
  Transmission Date: 20240410
  Serious: Yes (Other)
  Sender: FDA-Public Use
  Company Number: AU-ASTELLAS-2024US003393

PATIENT
  Age: 71 Year
  Sex: Male

DRUGS (4)
  1. ENZALUTAMIDE [Interacting]
     Active Substance: ENZALUTAMIDE
     Indication: Prostate cancer metastatic
     Route: 048
     Dates: start: 20231027
  2. ENZALUTAMIDE [Interacting]
     Active Substance: ENZALUTAMIDE
     Indication: Prostate cancer
  3. TALZENNA [Interacting]
     Active Substance: TALAZOPARIB TOSYLATE
     Indication: Prostate cancer metastatic
     Dosage: 0.5 MG, ONCE DAILY
     Route: 048
     Dates: start: 20231027
  4. TALZENNA [Interacting]
     Active Substance: TALAZOPARIB TOSYLATE
     Dosage: UNK UNK, UNKNOWN FREQ. (DOSE DECREASED)
     Route: 048

REACTIONS (2)
  - Anaemia [Recovering/Resolving]
  - Drug interaction [Unknown]

NARRATIVE: CASE EVENT DATE: 20240108
